FAERS Safety Report 6969650-2 (Version None)
Quarter: 2010Q3

REPORT INFORMATION
  Report Type: 
  Country: None (occurrence: None)
  Receive Date: 20100908
  Receipt Date: 20100902
  Transmission Date: 20110219
  Serious: Yes (Hospitalization)
  Sender: FDA-Public Use
  Company Number: US-ASTRAZENECA-2007UW18673

PATIENT
  Age: 20654 Day
  Sex: Female
  Weight: 90.7 kg

DRUGS (27)
  1. SEROQUEL [Suspect]
     Indication: HALLUCINATION
     Route: 048
  2. SEROQUEL [Suspect]
     Indication: SCHIZOAFFECTIVE DISORDER
     Route: 048
  3. SEROQUEL [Suspect]
     Indication: DEPRESSION
     Route: 048
  4. SEROQUEL [Suspect]
     Dosage: 25-600 MG
     Route: 048
     Dates: start: 20010326
  5. SEROQUEL [Suspect]
     Dosage: 25-600 MG
     Route: 048
     Dates: start: 20010326
  6. SEROQUEL [Suspect]
     Dosage: 25-600 MG
     Route: 048
     Dates: start: 20010326
  7. SEROQUEL [Suspect]
     Dosage: 25 MG TO 1200 MG
     Route: 048
     Dates: start: 20030121, end: 20031212
  8. SEROQUEL [Suspect]
     Dosage: 25 MG TO 1200 MG
     Route: 048
     Dates: start: 20030121, end: 20031212
  9. SEROQUEL [Suspect]
     Dosage: 25 MG TO 1200 MG
     Route: 048
     Dates: start: 20030121, end: 20031212
  10. ALBUTEROL [Concomitant]
  11. BUSPAR [Concomitant]
  12. GEODON [Concomitant]
     Dosage: 40 MG TO 120 MG
     Dates: start: 20060628
  13. PROZAC [Concomitant]
     Dates: start: 20030124
  14. KLONOPIN [Concomitant]
  15. DELTASONE [Concomitant]
  16. ZYPREXA [Concomitant]
     Indication: HALLUCINATION
     Dosage: 2.5 MG TO 10 MG
     Dates: start: 20031212, end: 20040614
  17. ZYPREXA [Concomitant]
     Indication: SCHIZOAFFECTIVE DISORDER
     Dosage: 2.5 MG TO 10 MG
     Dates: start: 20031212, end: 20040614
  18. ZYPREXA [Concomitant]
     Indication: DEPRESSION
     Dosage: 2.5 MG TO 10 MG
     Dates: start: 20031212, end: 20040614
  19. ALBILIFY [Concomitant]
     Dosage: 5 MG TO 200 MG
     Dates: start: 20040412, end: 20051011
  20. TRAZODONE HCL [Concomitant]
  21. LIPITOR [Concomitant]
  22. ENALAPRIL [Concomitant]
  23. FUROSEMIDE [Concomitant]
  24. RISPERDAL [Concomitant]
     Indication: HALLUCINATION
     Dosage: 1MG TO 6 MG
     Dates: start: 20051026, end: 20060731
  25. RISPERDAL [Concomitant]
     Indication: SCHIZOAFFECTIVE DISORDER
     Dosage: 1MG TO 6 MG
     Dates: start: 20051026, end: 20060731
  26. HALDOL [Concomitant]
  27. ATIVAN [Concomitant]
     Dosage: 2 MG TO 5 MG
     Dates: start: 20040430, end: 20070307

REACTIONS (20)
  - AGITATION [None]
  - BREAST MASS [None]
  - CELLULITIS [None]
  - CHRONIC OBSTRUCTIVE PULMONARY DISEASE [None]
  - DYSPNOEA [None]
  - EAR INFECTION [None]
  - EAR PAIN [None]
  - GASTROENTERITIS VIRAL [None]
  - HALLUCINATION, AUDITORY [None]
  - HALLUCINATION, VISUAL [None]
  - ONYCHOMYCOSIS [None]
  - PAIN IN JAW [None]
  - PHYSICAL DISABILITY [None]
  - POOR QUALITY SLEEP [None]
  - RHINITIS ALLERGIC [None]
  - TACHYPHRENIA [None]
  - TOOTH INFECTION [None]
  - TYPE 2 DIABETES MELLITUS [None]
  - UPPER RESPIRATORY TRACT INFECTION [None]
  - VISION BLURRED [None]
